FAERS Safety Report 10641208 (Version 11)
Quarter: 2022Q3

REPORT INFORMATION
  Report Type: Spontaneous
  Country: US (occurrence: US)
  Receive Date: 20141209
  Receipt Date: 20220821
  Transmission Date: 20221027
  Serious: Yes (Hospitalization, Other)
  Sender: FDA-Public Use
  Company Number: US-GLAXOSMITHKLINE-US2014GSK032758

PATIENT
  Age: 64 Year
  Sex: Male

DRUGS (3)
  1. FLOLAN [Suspect]
     Active Substance: EPOPROSTENOL SODIUM
     Indication: Cor pulmonale chronic
     Dosage: 3 NG/KG/MIN, CO
     Dates: start: 20141117
  2. FLOLAN [Suspect]
     Active Substance: EPOPROSTENOL SODIUM
     Dosage: 5 NG/KG/MIN, CO
  3. WARFARIN [Concomitant]
     Active Substance: WARFARIN

REACTIONS (2)
  - International normalised ratio increased [Unknown]
  - Hospitalisation [Unknown]

NARRATIVE: CASE EVENT DATE: 20141215
